FAERS Safety Report 6879375-X (Version None)
Quarter: 2010Q3

REPORT INFORMATION
  Report Type: 
  Country: None (occurrence: None)
  Receive Date: 20100728
  Receipt Date: 20100713
  Transmission Date: 20110219
  Serious: Yes (Other)
  Sender: FDA-Public Use
  Company Number: US-PAR PHARMACEUTICAL, INC-2010SCPR001922

PATIENT

DRUGS (2)
  1. ONDANSETRON [Suspect]
     Indication: NAUSEA
     Dosage: 4 MG, EVERY 6 HOURS
     Route: 042
  2. ONDANSETRON [Suspect]
     Indication: VOMITING
     Dosage: UNK
     Route: 065

REACTIONS (1)
  - DRUG WITHDRAWAL SYNDROME [None]
